FAERS Safety Report 6623446-X (Version None)
Quarter: 2010Q1

REPORT INFORMATION
  Report Type: 
  Country: None (occurrence: None)
  Receive Date: 20100310
  Receipt Date: 20100301
  Transmission Date: 20100710
  Serious: No
  Sender: FDA-Public Use
  Company Number: US-JNJFOC-20100301058

PATIENT
  Sex: Male
  Weight: 127.01 kg

DRUGS (5)
  1. DURAGESIC-100 [Suspect]
     Indication: BACK PAIN
     Route: 062
  2. MANY OTHER UNSPECIFIED MEDICATIONS [Concomitant]
     Indication: HYPERTENSION
     Route: 065
  3. MANY OTHER UNSPECIFIED MEDICATIONS [Concomitant]
     Indication: ARTHRITIS
     Route: 065
  4. MANY OTHER UNSPECIFIED MEDICATIONS [Concomitant]
     Indication: CHRONIC OBSTRUCTIVE PULMONARY DISEASE
     Route: 065
  5. MANY OTHER UNSPECIFIED MEDICATIONS [Concomitant]
     Indication: BACK PAIN
     Route: 065

REACTIONS (1)
  - WRONG TECHNIQUE IN DRUG USAGE PROCESS [None]
